FAERS Safety Report 5990212-8 (Version None)
Quarter: 2008Q4

REPORT INFORMATION
  Report Type: 
  Country: None (occurrence: None)
  Receive Date: 20081211
  Receipt Date: 20081204
  Transmission Date: 20090506
  Serious: Yes (Hospitalization, Other)
  Sender: FDA-Public Use
  Company Number: CN-NOVOPROD-280174

PATIENT
  Age: 61 Year
  Sex: Female

DRUGS (1)
  1. NOVOLIN R [Suspect]
     Indication: KETOSIS
     Dosage: 6 IU, QD
     Dates: start: 20080916

REACTIONS (2)
  - CHILLS [None]
  - PYREXIA [None]
